FAERS Safety Report 10995400 (Version 1)
Quarter: 2015Q2

REPORT INFORMATION
  Report Type: Spontaneous
  Country: NP (occurrence: NP)
  Receive Date: 20150407
  Receipt Date: 20150407
  Transmission Date: 20150821
  Serious: Yes (Other)
  Sender: FDA-Public Use
  Company Number: NP-PFIZER INC-2015118980

PATIENT
  Age: 45 Year
  Sex: Male

DRUGS (4)
  1. CIPROFLOXACIN. [Concomitant]
     Active Substance: CIPROFLOXACIN
     Dosage: CONCENTRATION: 0.3 %
     Route: 061
  2. ADRENALINE [Suspect]
     Active Substance: EPINEPHRINE
     Dosage: 4ML LIDOCAINE 2% IN 1:100,000 EPINEPHRINE WAS INJECTED
     Route: 047
  3. LIDOCAINE HCL [Suspect]
     Active Substance: LIDOCAINE HYDROCHLORIDE
     Indication: ANAESTHESIA
     Dosage: 4ML LIDOCAINE 2% IN 1:100,000 EPINEPHRINE WAS INJECTED
     Route: 047
  4. POVIDONE IODINE [Concomitant]
     Active Substance: POVIDONE-IODINE
     Indication: IRRIGATION THERAPY
     Dosage: CONCENTRATION: 5 %

REACTIONS (1)
  - Retinal artery occlusion [Unknown]
